FAERS Safety Report 8916971 (Version 2)
Quarter: 2013Q1

REPORT INFORMATION
  Report Type: Spontaneous
  Country: DK (occurrence: FR)
  Receive Date: 20121120
  Receipt Date: 20130314
  Transmission Date: 20140127
  Serious: Yes (Hospitalization)
  Sender: FDA-Public Use
  Company Number: FR-FRI-1000040524

PATIENT
  Age: 92 Year
  Sex: Male

DRUGS (7)
  1. ESCITALOPRAM [Suspect]
     Dosage: 10 MG
     Route: 048
     Dates: end: 20121016
  2. TIAPRIDAL [Suspect]
     Indication: AGITATION
     Dosage: 75 MG
     Route: 048
     Dates: start: 20121012, end: 20121016
  3. IMOVANE [Suspect]
     Indication: AGITATION
     Dosage: 3.75 MG
     Route: 048
     Dates: start: 20121012, end: 20121016
  4. SERESTA [Suspect]
     Indication: AGITATION
     Dosage: 10 MG
     Route: 048
     Dates: start: 20121015, end: 20121016
  5. COVERSYL [Concomitant]
  6. LASILIX [Concomitant]
  7. INEXIUM [Concomitant]

REACTIONS (2)
  - Respiratory distress [Recovered/Resolved]
  - Cyanosis [Recovered/Resolved]
